FAERS Safety Report 5652246-2 (Version None)
Quarter: 2008Q1

REPORT INFORMATION
  Report Type: 
  Country: None (occurrence: None)
  Receive Date: 20080305
  Receipt Date: 20080227
  Transmission Date: 20080703
  Serious: Yes (Hospitalization, Other)
  Sender: FDA-Public Use
  Company Number: PH-BOEHRINGER INGELHEIM GMBH, GERMANY-2007-BP-26771BP

PATIENT
  Sex: Male
  Weight: 69 kg

DRUGS (2)
  1. PRAMIPEXOLE ER [Suspect]
     Indication: PARKINSON'S DISEASE
     Route: 048
     Dates: start: 20071204, end: 20071222
  2. MICARDIS [Concomitant]
     Indication: HYPERTENSION
     Route: 048
     Dates: start: 20070514

REACTIONS (3)
  - MASKED FACIES [None]
  - PRESYNCOPE [None]
  - SYNCOPE [None]
